FAERS Safety Report 25067108 (Version 2)
Quarter: 2025Q2

REPORT INFORMATION
  Report Type: Spontaneous
  Country: KR (occurrence: KR)
  Receive Date: 20250312
  Receipt Date: 20250513
  Transmission Date: 20250717
  Serious: No
  Sender: BIOVITRUM
  Company Number: KR-BIOVITRUM-2025-KR-003160

PATIENT
  Age: 57 Year
  Sex: Male

DRUGS (3)
  1. AVATROMBOPAG [Suspect]
     Active Substance: AVATROMBOPAG
     Indication: Immune thrombocytopenia
     Dates: start: 20241002, end: 20241114
  2. AVATROMBOPAG [Suspect]
     Active Substance: AVATROMBOPAG
     Dates: start: 20241115, end: 20241212
  3. AVATROMBOPAG [Suspect]
     Active Substance: AVATROMBOPAG
     Dates: start: 20241213

REACTIONS (1)
  - Anaemia [Not Recovered/Not Resolved]

NARRATIVE: CASE EVENT DATE: 20241212
